FAERS Safety Report 13291952 (Version 1)
Quarter: 2017Q1

REPORT INFORMATION
  Report Type: Report from Study
  Country: US (occurrence: US)
  Receive Date: 20170303
  Receipt Date: 20170303
  Transmission Date: 20170428
  Serious: Yes (Hospitalization, Other)
  Sender: FDA-Public Use
  Company Number: US-BRISTOL-MYERS SQUIBB COMPANY-BMS-2017-016645

PATIENT

DRUGS (2)
  1. BLINDED PLACEBO [Suspect]
     Active Substance: INVESTIGATIONAL PRODUCT
     Indication: SYSTEMIC SCLERODERMA
     Dosage: 125 MG, QWK
     Route: 058
     Dates: start: 20141203
  2. BLINDED ABATACEPT [Suspect]
     Active Substance: ABATACEPT
     Indication: SYSTEMIC SCLERODERMA
     Dosage: 125 MG, QWK
     Route: 058
     Dates: start: 20141203

REACTIONS (1)
  - Haemoptysis [Unknown]
